FAERS Safety Report 14568183 (Version 1)
Quarter: 2018Q1

REPORT INFORMATION
  Report Type: Spontaneous
  Country: IT (occurrence: IT)
  Receive Date: 20180223
  Receipt Date: 20180223
  Transmission Date: 20180509
  Serious: Yes (Other)
  Sender: FDA-Public Use
  Company Number: IT-WEST-WARD PHARMACEUTICALS CORP.-IT-H14001-18-01328

PATIENT
  Sex: Female

DRUGS (2)
  1. LEVETIRACETAM. [Suspect]
     Active Substance: LEVETIRACETAM
     Indication: EPILEPSY
     Route: 065
  2. RUFINAMIDE [Suspect]
     Active Substance: RUFINAMIDE
     Indication: EPILEPSY
     Route: 065

REACTIONS (2)
  - Maternal exposure during pregnancy [Recovered/Resolved]
  - Abortion spontaneous [Unknown]
